FAERS Safety Report 4590815-1 (Version None)
Quarter: 2005Q1

REPORT INFORMATION
  Report Type: 
  Country: None (occurrence: None)
  Receive Date: 20050222
  Receipt Date: 20050222
  Transmission Date: 20050727
  Serious: Yes (Other)
  Sender: FDA-Public Use
  Company Number: None

PATIENT
  Age: 59 Year
  Sex: Male
  Weight: 247.5 kg

DRUGS (4)
  1. GEMCITABINE [Suspect]
     Indication: BLADDER CANCER
     Dosage: 1000 MG/M2 IV
     Route: 042
     Dates: start: 20041220, end: 20050210
  2. PACLITAXEL [Suspect]
     Indication: BLADDER CANCER
     Dosage: 50 MG/M1 IV
     Route: 042
     Dates: start: 20041220, end: 20050210
  3. CISPLATIN [Concomitant]
     Indication: BLADDER CANCER
     Dosage: 35 MG/M2 IV
     Route: 042
     Dates: start: 20041220, end: 20050210
  4. DECADRON [Concomitant]

REACTIONS (7)
  - ARTHRALGIA [None]
  - BLOOD PRESSURE SYSTOLIC INCREASED [None]
  - CHEST PAIN [None]
  - COGNITIVE DISORDER [None]
  - FATIGUE [None]
  - OEDEMA PERIPHERAL [None]
  - WEIGHT INCREASED [None]
